FAERS Safety Report 8101997-9 (Version None)
Quarter: 2012Q1

REPORT INFORMATION
  Report Type: 
  Country: None (occurrence: None)
  Receive Date: 20120131
  Receipt Date: 20120130
  Transmission Date: 20120608
  Serious: Yes (Death, Hospitalization)
  Sender: FDA-Public Use
  Company Number: AU-B.I. PHARMACEUTICALS,INC./RIDGEFIELD-2011-AU-01060AU

PATIENT
  Sex: Female
  Weight: 74 kg

DRUGS (11)
  1. FOSAMAX [Concomitant]
  2. METOPROLOL TARTRATE [Concomitant]
  3. URAL [Concomitant]
  4. PRADAXA [Suspect]
     Indication: ATRIAL FIBRILLATION
     Dosage: 220 MG
     Dates: start: 20110813
  5. ATACAND [Concomitant]
  6. IMDUR [Concomitant]
  7. LIPITOR [Concomitant]
  8. IKOREL [Concomitant]
  9. FUROSEMIDE [Concomitant]
  10. NORVASC [Concomitant]
  11. PARADEX [Concomitant]
     Dosage: FOR 1-2 DAYS

REACTIONS (1)
  - ACUTE MYOCARDIAL INFARCTION [None]
